FAERS Safety Report 8262307-X (Version None)
Quarter: 2012Q2

REPORT INFORMATION
  Report Type: 
  Country: None (occurrence: None)
  Receive Date: 20120405
  Receipt Date: 20120223
  Transmission Date: 20120825
  Serious: Yes (Other)
  Sender: FDA-Public Use
  Company Number: US-ROCHE-607136

PATIENT
  Age: 78 Year
  Sex: Female

DRUGS (8)
  1. BONIVA [Suspect]
     Route: 048
  2. LORATADINE [Concomitant]
  3. AMBIEN [Concomitant]
  4. MULTIVITAMIN [Concomitant]
  5. BONIVA [Suspect]
     Indication: PRODUCT USED FOR UNKNOWN INDICATION
     Route: 048
  6. FOSAMAX [Suspect]
     Indication: PRODUCT USED FOR UNKNOWN INDICATION
     Route: 065
  7. PHENOBARBITAL TAB [Concomitant]
  8. COREG [Concomitant]

REACTIONS (5)
  - IMPLANTABLE DEFIBRILLATOR INSERTION [None]
  - SPONDYLITIS [None]
  - FALL [None]
  - DIARRHOEA [None]
  - DYSPEPSIA [None]
